FAERS Safety Report 24174736 (Version 1)
Quarter: 2024Q3

REPORT INFORMATION
  Report Type: Report from Study
  Country: ZA (occurrence: ZA)
  Receive Date: 20240805
  Receipt Date: 20240805
  Transmission Date: 20241016
  Serious: Yes (Hospitalization)
  Sender: BIOVITRUM
  Company Number: ZA-AstraZeneca-2022A191562

PATIENT
  Sex: Female
  Weight: 2.8 kg

DRUGS (1)
  1. SYNAGIS [Suspect]
     Active Substance: PALIVIZUMAB
     Indication: Respiratory syncytial virus infection
     Dosage: 15MG/KG MONTHLY
     Route: 030
     Dates: start: 20220226

REACTIONS (1)
  - Dyspnoea [Recovered/Resolved]
